FAERS Safety Report 5209826-8 (Version None)
Quarter: 2006Q4

REPORT INFORMATION
  Report Type: 
  Country: None (occurrence: None)
  Receive Date: 20061130
  Receipt Date: 20060308
  Transmission Date: 20070319
  Serious: Yes (Hospitalization)
  Sender: FDA-Public Use
  Company Number: 2005152607

PATIENT
  Age: 67 Year
  Sex: Male
  Weight: 104.3273 kg

DRUGS (8)
  1. ZYVOX [Suspect]
     Indication: STAPHYLOCOCCAL INFECTION
     Dosage: 1200 MG (600 MG, 2 IN 1 D); ORAL
     Route: 048
     Dates: start: 20051028, end: 20051101
  2. LIPITOR [Concomitant]
  3. ALL OTHER THERAPEUTIC PRODUCTS [Concomitant]
  4. RIMANTADINE HCL [Concomitant]
  5. ATENOLOL [Concomitant]
  6. SILDENAFIL CITRATE [Concomitant]
  7. ASPIRIN [Concomitant]
  8. RANITIDINE [Concomitant]

REACTIONS (1)
  - DRUG INEFFECTIVE [None]
